FAERS Safety Report 8097122-3 (Version None)
Quarter: 2012Q1

REPORT INFORMATION
  Report Type: 
  Country: None (occurrence: None)
  Receive Date: 20120129
  Receipt Date: 20111207
  Transmission Date: 20120608
  Serious: No
  Sender: FDA-Public Use
  Company Number: US-ABBOTT-11P-163-0882054-00

PATIENT
  Sex: Female

DRUGS (2)
  1. HUMIRA [Suspect]
     Dates: start: 20111205
  2. HUMIRA [Suspect]
     Indication: CROHN'S DISEASE
     Dates: end: 20101201

REACTIONS (3)
  - CROHN'S DISEASE [None]
  - DYSGEUSIA [None]
  - SOMNOLENCE [None]
